FAERS Safety Report 9105248 (Version 1)
Quarter: 2013Q1

REPORT INFORMATION
  Report Type: Spontaneous
  Country: ES (occurrence: ES)
  Receive Date: 20130221
  Receipt Date: 20130221
  Transmission Date: 20140127
  Serious: Yes (Other)
  Sender: FDA-Public Use
  Company Number: ES-OTSUKA-EU-2013-10039

PATIENT
  Sex: 0

DRUGS (1)
  1. PLETAL [Suspect]
     Indication: VASCULAR INSUFFICIENCY
     Route: 048
     Dates: start: 20121015, end: 201211

REACTIONS (2)
  - Eosinophilia [Recovered/Resolved]
  - Rash [Recovered/Resolved]
